FAERS Safety Report 9284547 (Version 1)
Quarter: 2013Q2

REPORT INFORMATION
  Report Type: Spontaneous
  Country: GB (occurrence: GB)
  Receive Date: 20130511
  Receipt Date: 20130511
  Transmission Date: 20140414
  Serious: Yes (Life-Threatening, Hospitalization)
  Sender: FDA-Public Use
  Company Number: GB-ACCORD-017486

PATIENT
  Age: 76 Year
  Sex: Female
  Weight: 56 kg

DRUGS (17)
  1. DONEPEZIL [Suspect]
     Indication: DEMENTIA ALZHEIMER^S TYPE
     Dosage: AT NIGHT
     Route: 048
     Dates: end: 20130317
  2. BISOPROLOL [Suspect]
     Indication: ACUTE MYOCARDIAL INFARCTION
     Dosage: IN THE MORNING
     Route: 048
     Dates: start: 20130312, end: 20130315
  3. BRILIQUE [Suspect]
     Indication: ACUTE MYOCARDIAL INFARCTION
     Route: 048
     Dates: start: 20130312
  4. BENDROFLUMETHIAZIDE [Concomitant]
  5. ATORVASTATIN [Concomitant]
  6. NITROFURANTOIN [Concomitant]
  7. ASPIRIN [Concomitant]
  8. LEVOTHYROXINE [Concomitant]
  9. OMACOR [Concomitant]
  10. ENOXAPARIN [Concomitant]
  11. FERROUS SULPHATE [Concomitant]
  12. FOLIC ACID [Concomitant]
  13. GLYCERYL TRINITRATE [Concomitant]
  14. SODIUM BICARBONATE [Concomitant]
  15. PARACETAMOL [Concomitant]
  16. AMLODIPINE [Concomitant]
  17. RAMIPRIL [Concomitant]

REACTIONS (4)
  - Atrioventricular block first degree [Recovered/Resolved]
  - Syncope [Recovered/Resolved]
  - Unresponsive to stimuli [Recovered/Resolved]
  - Off label use [Unknown]
